FAERS Safety Report 15901472 (Version 1)
Quarter: 2019Q1

REPORT INFORMATION
  Report Type: Spontaneous
  Country: US (occurrence: US)
  Receive Date: 20190201
  Receipt Date: 20190201
  Transmission Date: 20190417
  Serious: No
  Sender: FDA-Public Use
  Company Number: None

PATIENT
  Age: 29 Year
  Sex: Female
  Weight: 117 kg

DRUGS (4)
  1. CLOBETASOL PROPIONATE TOPICAL SOLUTION UPS 0.05% [Suspect]
     Active Substance: CLOBETASOL PROPIONATE
     Indication: SEBORRHOEIC DERMATITIS
     Route: 061
     Dates: start: 20190130, end: 20190130
  2. ALBUTEROL SOLUTION FOR NEBULIZER [Concomitant]
  3. CONTROL INHALER [Concomitant]
  4. ALBUTEROL INHALER [Concomitant]
     Active Substance: ALBUTEROL

REACTIONS (2)
  - Paraesthesia [None]
  - Application site pain [None]

NARRATIVE: CASE EVENT DATE: 20190130
